FAERS Safety Report 16440196 (Version 2)
Quarter: 2019Q3

REPORT INFORMATION
  Report Type: Spontaneous
  Country: GB (occurrence: GB)
  Receive Date: 20190617
  Receipt Date: 20190729
  Transmission Date: 20191004
  Serious: Yes (Death, Other)
  Sender: FDA-Public Use
  Company Number: GB-PFIZER INC-2019252852

PATIENT
  Age: 39 Year
  Sex: Male

DRUGS (7)
  1. CODEINE [Interacting]
     Active Substance: CODEINE
     Dosage: UNK
     Route: 065
  2. BUPRENORPHINE. [Interacting]
     Active Substance: BUPRENORPHINE
     Indication: DRUG REHABILITATION
     Dosage: UNK
     Route: 065
  3. DIAZEPAM. [Interacting]
     Active Substance: DIAZEPAM
     Dosage: UNK
     Route: 065
  4. BUPRENORPHINE. [Interacting]
     Active Substance: BUPRENORPHINE
     Indication: DRUG DEPENDENCE
  5. PREGABALIN. [Suspect]
     Active Substance: PREGABALIN
     Dosage: UNK
     Route: 065
  6. ALCOHOL. [Interacting]
     Active Substance: ALCOHOL
     Dosage: UNK
     Route: 065
  7. MORPHINE [Interacting]
     Active Substance: MORPHINE
     Dosage: UNK
     Route: 065

REACTIONS (4)
  - Toxicity to various agents [Fatal]
  - Alcohol interaction [Fatal]
  - Drug interaction [Fatal]
  - Intentional overdose [Fatal]
